FAERS Safety Report 8887338 (Version 2)
Quarter: 2012Q4

REPORT INFORMATION
  Report Type: 
  Country: US (occurrence: US)
  Receive Date: 20121101
  Receipt Date: 20121210
  Transmission Date: 20130627
  Serious: Yes (Other)
  Sender: FDA-Public Use
  Company Number: US-PFIZER INC-2012272284

PATIENT
  Sex: Female
  Weight: 143.76 kg

DRUGS (10)
  1. LIPITOR [Suspect]
     Indication: HIGH CHOLESTEROL
     Dosage: 10 mg, 1x/day
     Route: 048
     Dates: start: 2002
  2. INSULIN [Concomitant]
     Indication: DIABETES
     Dosage: UNK
  3. HYDROCHLOROTHIAZIDE [Concomitant]
     Indication: BLOOD PRESSURE HIGH
     Dosage: UNK
  4. WELLBUTRIN [Concomitant]
     Dosage: UNK
  5. AMIODARONE [Concomitant]
     Dosage: UNK
  6. LEVOTHYROXINE [Concomitant]
     Dosage: UNK
  7. METOLAZONE [Concomitant]
     Dosage: UNK
  8. TORSEMIDE [Concomitant]
     Dosage: UNK
  9. BABY ASPIRIN [Concomitant]
     Dosage: UNK
  10. CARVEDILOL [Concomitant]
     Dosage: UNK

REACTIONS (4)
  - Spinal disorder [Not Recovered/Not Resolved]
  - Back disorder [Not Recovered/Not Resolved]
  - Scoliosis [Not Recovered/Not Resolved]
  - Neuralgia [Not Recovered/Not Resolved]
